FAERS Safety Report 22722462 (Version 2)
Quarter: 2024Q2

REPORT INFORMATION
  Report Type: Report from Study
  Country: AT (occurrence: AT)
  Receive Date: 20230719
  Receipt Date: 20240410
  Transmission Date: 20240715
  Serious: Yes (Other)
  Sender: FDA-Public Use
  Company Number: AT-TAKEDA-2023TUS052149

PATIENT
  Sex: Female

DRUGS (3)
  1. VEDOLIZUMAB [Suspect]
     Active Substance: VEDOLIZUMAB
     Indication: Colitis ulcerative
     Dosage: 300 MILLIGRAM
     Route: 042
     Dates: start: 202303
  2. VEDOLIZUMAB [Suspect]
     Active Substance: VEDOLIZUMAB
     Indication: Colitis ulcerative
     Dosage: 108 MILLIGRAM, 1/WEEK
     Route: 058
     Dates: start: 20230512, end: 202310
  3. MESALAMINE [Concomitant]
     Active Substance: MESALAMINE
     Dosage: UNK

REACTIONS (6)
  - Colitis ulcerative [Unknown]
  - Drug ineffective [Not Recovered/Not Resolved]
  - Mucous stools [Recovered/Resolved]
  - Off label use [Unknown]
  - Flatulence [Not Recovered/Not Resolved]
  - Abdominal distension [Unknown]
